FAERS Safety Report 4660976-4 (Version None)
Quarter: 2005Q2

REPORT INFORMATION
  Report Type: 
  Country: None (occurrence: None)
  Receive Date: 20050511
  Receipt Date: 20050427
  Transmission Date: 20051028
  Serious: Yes (Other)
  Sender: FDA-Public Use
  Company Number: 8010382

PATIENT
  Age: 20 Year
  Sex: Female

DRUGS (1)
  1. KEPPRA [Suspect]
     Indication: CONVULSION
     Dosage: PO
     Route: 048

REACTIONS (6)
  - ABORTION SPONTANEOUS [None]
  - DRUG DOSE OMISSION [None]
  - DRUG EXPOSURE DURING PREGNANCY [None]
  - FOETAL GROWTH RETARDATION [None]
  - IMPAIRED WORK ABILITY [None]
  - PREGNANCY [None]
